FAERS Safety Report 18567111 (Version 1)
Quarter: 2020Q4

REPORT INFORMATION
  Report Type: Spontaneous
  Country: US (occurrence: US)
  Receive Date: 20201201
  Receipt Date: 20201201
  Transmission Date: 20210114
  Serious: Yes (Other)
  Sender: FDA-Public Use
  Company Number: US-PURDUE PHARMA-USA-2020-0180267

PATIENT
  Sex: Female

DRUGS (2)
  1. ALCOHOL. [Suspect]
     Active Substance: ALCOHOL
     Indication: PRODUCT USED FOR UNKNOWN INDICATION
     Route: 048
  2. OXYCODONE HYDROCHLORIDE (SIMILAR TO NDA 22-272) [Suspect]
     Active Substance: OXYCODONE HYDROCHLORIDE
     Indication: PAIN
     Route: 048

REACTIONS (8)
  - Drug abuse [Recovered/Resolved]
  - Feeling abnormal [Unknown]
  - Drug dependence [Recovered/Resolved]
  - Drug withdrawal syndrome [Unknown]
  - Complication associated with device [Unknown]
  - Somnolence [Unknown]
  - Spinal fusion surgery [Unknown]
  - Euphoric mood [Unknown]
